FAERS Safety Report 12431475 (Version 1)
Quarter: 2016Q2

REPORT INFORMATION
  Report Type: Spontaneous
  Country: US (occurrence: US)
  Receive Date: 20160603
  Receipt Date: 20160603
  Transmission Date: 20160815
  Serious: Yes (Other)
  Sender: FDA-Public Use
  Company Number: US-BRISTOL-MYERS SQUIBB COMPANY-BMS-2015-090775

PATIENT
  Sex: Female
  Weight: 44.44 kg

DRUGS (1)
  1. OPDIVO [Suspect]
     Active Substance: NIVOLUMAB
     Indication: LUNG NEOPLASM MALIGNANT
     Dosage: 1 UNK, Q2WK
     Route: 042

REACTIONS (8)
  - Gastrooesophageal reflux disease [Unknown]
  - Skin disorder [Unknown]
  - Back pain [Unknown]
  - Decreased appetite [Unknown]
  - Somnolence [Unknown]
  - Catheter site pain [Unknown]
  - Constipation [Unknown]
  - Fatigue [Unknown]
